FAERS Safety Report 5170904-3 (Version None)
Quarter: 2006Q4

REPORT INFORMATION
  Report Type: 
  Country: None (occurrence: None)
  Receive Date: 20061213
  Receipt Date: 20061205
  Transmission Date: 20070319
  Serious: Yes (Hospitalization)
  Sender: FDA-Public Use
  Company Number: US-JNJFOC-20060504008

PATIENT
  Sex: Female
  Weight: 79 kg

DRUGS (18)
  1. HALDOL [Suspect]
     Indication: AGITATION
  2. CEP-18083 [Suspect]
     Route: 042
  3. CEP-18083 [Suspect]
     Indication: NON-HODGKIN'S LYMPHOMA
     Route: 042
  4. HYDROCHLOROTHIAZIDE [Concomitant]
  5. POTASSIUM CHLORIDE [Concomitant]
  6. XANAX [Concomitant]
  7. SYNTHROID [Concomitant]
  8. TYLENOL [Concomitant]
  9. GLUCOSAMINE [Concomitant]
  10. CHONDROITIN [Concomitant]
  11. GRAPE SEED EXTRACT [Concomitant]
  12. CALCIUM [Concomitant]
  13. VITAMIN TAB [Concomitant]
  14. VITAMIN E [Concomitant]
  15. MAGNESIUM [Concomitant]
  16. VITAMIN CAP [Concomitant]
  17. ALLOPURINOL [Concomitant]
  18. COMPAZINE [Concomitant]

REACTIONS (1)
  - INFUSION RELATED REACTION [None]
